FAERS Safety Report 12559541 (Version 1)
Quarter: 2016Q3

REPORT INFORMATION
  Report Type: Spontaneous
  Country: US (occurrence: None)
  Receive Date: 20160714
  Receipt Date: 20160714
  Transmission Date: 20161109
  Serious: Yes (Hospitalization, Disabling)
  Sender: FDA-Public Use
  Company Number: None

PATIENT
  Age: 3 Year
  Sex: Female
  Weight: 16.33 kg

DRUGS (3)
  1. KIDS VITAMING GUMMIES [Concomitant]
  2. NEUPOGEN [Concomitant]
     Active Substance: FILGRASTIM
  3. CLINDAMYCIN [Suspect]
     Active Substance: CLINDAMYCIN\CLINDAMYCIN PHOSPHATE

REACTIONS (1)
  - Cyclic neutropenia [None]

NARRATIVE: CASE EVENT DATE: 20160712
